FAERS Safety Report 4913094-1 (Version None)
Quarter: 2006Q1

REPORT INFORMATION
  Report Type: 
  Country: None (occurrence: None)
  Receive Date: 20060210
  Receipt Date: 20060131
  Transmission Date: 20060701
  Serious: Yes (Other)
  Sender: FDA-Public Use
  Company Number: S05-USA-05241-01

PATIENT
  Age: 19 Year
  Sex: Female

DRUGS (6)
  1. LEXAPRO [Suspect]
     Indication: SOCIAL PHOBIA
     Dosage: 20 MG QD PO
     Route: 048
     Dates: start: 20040101, end: 20040101
  2. LEXAPRO [Suspect]
     Indication: SOCIAL PHOBIA
     Dosage: 10 MG QD PO
     Route: 048
     Dates: start: 20040101, end: 20040101
  3. LEXAPRO [Suspect]
     Indication: SOCIAL PHOBIA
     Dosage: 10 MG QD PO
     Route: 048
     Dates: start: 20060124
  4. ALCOHOL [Concomitant]
  5. MARIJUANA [Concomitant]
  6. EFFEXOR [Concomitant]

REACTIONS (4)
  - ALCOHOL USE [None]
  - DRUG ABUSER [None]
  - LOSS OF CONSCIOUSNESS [None]
  - TREATMENT NONCOMPLIANCE [None]
